FAERS Safety Report 8455593-4 (Version None)
Quarter: 2012Q2

REPORT INFORMATION
  Report Type: 
  Country: None (occurrence: None)
  Receive Date: 20120614
  Receipt Date: 20120602
  Transmission Date: 20120825
  Serious: Yes (Hospitalization)
  Sender: FDA-Public Use
  Company Number: IPC201206-000246

PATIENT
  Age: 50 Year
  Sex: Female

DRUGS (2)
  1. LICORICE [Suspect]
  2. HYDROCHLOROTHIAZIDE [Suspect]

REACTIONS (10)
  - HYPOKALAEMIA [None]
  - HYPOCALCAEMIA [None]
  - HYPOPHOSPHATAEMIA [None]
  - BLOOD CREATINE PHOSPHOKINASE INCREASED [None]
  - BLOOD ALDOSTERONE DECREASED [None]
  - RENIN DECREASED [None]
  - RHABDOMYOLYSIS [None]
  - HYPERTENSION [None]
  - BLOOD PARATHYROID HORMONE INCREASED [None]
  - METABOLIC ALKALOSIS [None]
